FAERS Safety Report 5795569-9 (Version None)
Quarter: 2008Q2

REPORT INFORMATION
  Report Type: 
  Country: None (occurrence: None)
  Receive Date: 20080630
  Receipt Date: 20080618
  Transmission Date: 20081010
  Serious: Yes (Other)
  Sender: FDA-Public Use
  Company Number: US-PFIZER INC-2008051421

PATIENT
  Sex: Female
  Weight: 64.9 kg

DRUGS (3)
  1. FLAGYL [Suspect]
  2. IMITREX [Concomitant]
  3. DRUG, UNSPECIFIED [Concomitant]

REACTIONS (3)
  - DYSPNOEA [None]
  - FUNGAL INFECTION [None]
  - RASH [None]
